FAERS Safety Report 9363936 (Version 1)
Quarter: 2013Q2

REPORT INFORMATION
  Report Type: Report from Study
  Country: US (occurrence: US)
  Receive Date: 20130624
  Receipt Date: 20130624
  Transmission Date: 20140414
  Serious: Yes (Hospitalization)
  Sender: FDA-Public Use
  Company Number: US-ROCHE-1220522

PATIENT
  Age: 58 Year
  Sex: Male
  Weight: 119.55 kg

DRUGS (8)
  1. BEVACIZUMAB [Suspect]
     Indication: GLIOBLASTOMA MULTIFORME
     Dosage: DOSE- 10 MG/KG
     Route: 042
     Dates: start: 20130325, end: 20130422
  2. TEMOZOLOMIDE [Suspect]
     Indication: GLIOBLASTOMA MULTIFORME
     Dosage: DOSE 75 MG/ M2
     Route: 048
     Dates: start: 20130312, end: 20130424
  3. PRAVASTATIN [Concomitant]
     Route: 065
     Dates: start: 20130311
  4. LEVETIRACETAM [Concomitant]
     Route: 065
     Dates: start: 20130311
  5. ACETAMINOPHEN [Concomitant]
     Dosage: 1 OR 2 TABS EVERY 6 HOURS PRN
     Route: 065
     Dates: start: 20130311
  6. SENNOSIDES [Concomitant]
     Dosage: QD
     Route: 065
     Dates: start: 20130311
  7. NALTREXONE [Concomitant]
     Dosage: QD
     Route: 065
     Dates: start: 20130311
  8. DECADRON [Concomitant]
     Dosage: UNKNOWN DOSE
     Route: 065
     Dates: start: 20130311

REACTIONS (8)
  - Convulsion [Unknown]
  - Pneumonia [Unknown]
  - Pulmonary embolism [Unknown]
  - Folliculitis [Unknown]
  - Thrombocytopenia [Not Recovered/Not Resolved]
  - Asthenia [Unknown]
  - Oedema peripheral [Unknown]
  - Sepsis [Unknown]
